FAERS Safety Report 9818013 (Version 2)
Quarter: 2014Q1

REPORT INFORMATION
  Report Type: Spontaneous
  Country: US (occurrence: US)
  Receive Date: 20140115
  Receipt Date: 20140203
  Transmission Date: 20141002
  Serious: Yes (Other)
  Sender: FDA-Public Use
  Company Number: US-RB-061980-14

PATIENT
  Age: 59 Year
  Sex: Female

DRUGS (1)
  1. MUCINEX FAST MAX SEVERE CONGESTION AND COUGH LIQUID [Suspect]
     Indication: SINUSITIS
     Dosage: TOOK 2 HALF DOSES ON AN UNKNOWN DATE.
     Route: 048

REACTIONS (4)
  - Pharyngeal oedema [Recovered/Resolved]
  - Aphagia [Unknown]
  - Dysphagia [Unknown]
  - Unevaluable event [Unknown]
